FAERS Safety Report 8802787 (Version 2)
Quarter: 2015Q1

REPORT INFORMATION
  Report Type: Report from Study
  Country: US (occurrence: US)
  Receive Date: 20120921
  Receipt Date: 20150325
  Transmission Date: 20150721
  Serious: Yes (Death)
  Sender: FDA-Public Use
  Company Number: US-ROCHE-1126219

PATIENT
  Sex: Female

DRUGS (14)
  1. TEMODAR [Concomitant]
     Active Substance: TEMOZOLOMIDE
  2. NEULASTA [Concomitant]
     Active Substance: PEGFILGRASTIM
     Route: 058
  3. BACTRIM [Suspect]
     Active Substance: SULFAMETHOXAZOLE\TRIMETHOPRIM
     Indication: PRODUCT USED FOR UNKNOWN INDICATION
     Route: 065
  4. CAMPTOSAR [Concomitant]
     Active Substance: IRINOTECAN HYDROCHLORIDE
  5. AVASTIN [Suspect]
     Active Substance: BEVACIZUMAB
     Route: 042
     Dates: start: 20071024
  6. ZOFRAN [Concomitant]
     Active Substance: ONDANSETRON HYDROCHLORIDE
     Route: 065
  7. KYTRIL [Concomitant]
     Active Substance: GRANISETRON HYDROCHLORIDE
     Route: 048
  8. ATROPINE [Concomitant]
     Active Substance: ATROPINE
     Route: 065
  9. DECADRON [Concomitant]
     Active Substance: DEXAMETHASONE
     Route: 042
  10. LEVSIN [Concomitant]
     Active Substance: HYOSCYAMINE SULFATE
     Route: 048
  11. AVASTIN [Suspect]
     Active Substance: BEVACIZUMAB
     Dosage: ON 26/SEP/2007 AND 10/OCT/2007
     Route: 042
  12. DILANTIN [Concomitant]
     Active Substance: PHENYTOIN
     Route: 065
  13. AVASTIN [Suspect]
     Active Substance: BEVACIZUMAB
     Indication: BRAIN NEOPLASM MALIGNANT
     Dosage: ON 28/AUG/2007 AND 12/SEP/2007
     Route: 042
  14. ATIVAN [Concomitant]
     Active Substance: LORAZEPAM
     Route: 065

REACTIONS (3)
  - Death [Fatal]
  - Drug dose omission [Unknown]
  - Drug hypersensitivity [Unknown]
